FAERS Safety Report 10896631 (Version 3)
Quarter: 2015Q2

REPORT INFORMATION
  Report Type: Spontaneous
  Country: JP (occurrence: JP)
  Receive Date: 20150309
  Receipt Date: 20150526
  Transmission Date: 20150821
  Serious: Yes (Other)
  Sender: FDA-Public Use
  Company Number: JP-ROCHE-1548498

PATIENT
  Age: 85 Year
  Sex: Female
  Weight: 46 kg

DRUGS (3)
  1. BONVIVA [Suspect]
     Active Substance: IBANDRONATE SODIUM
     Indication: OSTEOPOROSIS
     Dosage: DOSAGE IS UNCERTAIN.
     Route: 042
     Dates: start: 20150129, end: 20150129
  2. LOXOPROFEN NA [Concomitant]
     Active Substance: LOXOPROFEN SODIUM
     Indication: ANALGESIC THERAPY
     Dosage: DOSAGE IS UNCERTAIN.
     Route: 061
     Dates: start: 20150129
  3. BUPRENORPHINE [Concomitant]
     Active Substance: BUPRENORPHINE
     Indication: BACK PAIN
     Dosage: DOSAGE IS UNCERTAIN., DRUG REPORTED AS NORSPAN
     Route: 061
     Dates: start: 20150129

REACTIONS (2)
  - Stasis dermatitis [Recovered/Resolved]
  - Erythema multiforme [Recovered/Resolved]

NARRATIVE: CASE EVENT DATE: 20150130
